FAERS Safety Report 10179310 (Version 1)
Quarter: 2014Q2

REPORT INFORMATION
  Report Type: Spontaneous
  Country: AU (occurrence: AU)
  Receive Date: 20140519
  Receipt Date: 20140519
  Transmission Date: 20141212
  Serious: Yes (Disabling)
  Sender: FDA-Public Use
  Company Number: AU-009507513-1405AUS007546

PATIENT
  Sex: Male

DRUGS (1)
  1. JANUMET 50 MG/500 MG [Suspect]
     Route: 048

REACTIONS (1)
  - Visual impairment [Unknown]
